FAERS Safety Report 6608370-0 (Version None)
Quarter: 2010Q1

REPORT INFORMATION
  Report Type: 
  Country: None (occurrence: None)
  Receive Date: 20100301
  Receipt Date: 20100217
  Transmission Date: 20100710
  Serious: Yes (Other)
  Sender: FDA-Public Use
  Company Number: JP-PFIZER INC-2009308182

PATIENT
  Age: 87 Year
  Sex: Male

DRUGS (4)
  1. ZITHROMAC SR [Suspect]
     Indication: PNEUMONIA
     Dosage: 2 G, SINGLE
     Route: 048
     Dates: start: 20091203, end: 20091203
  2. OTHER ANALGESICS AND ANTIPYRETICS [Concomitant]
     Route: 048
  3. ROCEPHIN [Concomitant]
     Route: 042
  4. LOXONIN [Concomitant]
     Route: 048

REACTIONS (1)
  - RHABDOMYOLYSIS [None]
